FAERS Safety Report 6347888-5 (Version None)
Quarter: 2009Q3

REPORT INFORMATION
  Report Type: 
  Country: None (occurrence: None)
  Receive Date: 20090910
  Receipt Date: 20090903
  Transmission Date: 20100115
  Serious: Yes (Other)
  Sender: FDA-Public Use
  Company Number: US-SANOFI-SYNTHELABO-A03200903677

PATIENT
  Sex: Male
  Weight: 108 kg

DRUGS (11)
  1. MULTAQ [Suspect]
     Indication: ATRIAL FIBRILLATION
     Route: 048
     Dates: start: 20090807, end: 20090818
  2. LOSARTAN [Concomitant]
     Indication: HYPERTENSION
     Route: 065
     Dates: start: 20090205
  3. METFORMIN HCL [Concomitant]
     Indication: DIABETES MELLITUS
     Route: 065
     Dates: start: 20090501
  4. DILTIAZEM CD [Concomitant]
     Indication: ATRIAL FIBRILLATION
     Route: 065
     Dates: start: 20090724
  5. COUMADIN [Suspect]
     Indication: ATRIAL FIBRILLATION
     Dosage: 5MG DAILY EXCEPT THURSDAY AND SATURDAY 2.5MG
     Route: 048
     Dates: start: 20080901, end: 20090818
  6. VENLAFAXINE [Concomitant]
     Indication: DRUG USE FOR UNKNOWN INDICATION
     Route: 065
     Dates: start: 20090217
  7. GLYBURIDE [Concomitant]
     Indication: DIABETES MELLITUS
     Route: 065
     Dates: start: 20090724
  8. VITAMIN D [Concomitant]
     Indication: VITAMIN D DEFICIENCY
     Route: 065
     Dates: start: 20090626
  9. CYCLOBENZAPRINE [Concomitant]
     Indication: MYALGIA
     Route: 065
     Dates: start: 20090521
  10. CRESTOR [Concomitant]
     Indication: DRUG USE FOR UNKNOWN INDICATION
     Route: 065
     Dates: start: 20081201
  11. FENOFIBRATE [Concomitant]
     Indication: DRUG USE FOR UNKNOWN INDICATION
     Route: 065
     Dates: end: 20090819

REACTIONS (1)
  - INTERNATIONAL NORMALISED RATIO INCREASED [None]
